FAERS Safety Report 4716993-9 (Version None)
Quarter: 2005Q3

REPORT INFORMATION
  Report Type: 
  Country: None (occurrence: None)
  Receive Date: 20050712
  Receipt Date: 20041018
  Transmission Date: 20060218
  Serious: Yes (Hospitalization)
  Sender: FDA-Public Use
  Company Number: PHEH2004US11168

PATIENT
  Age: 79 Year
  Sex: Male
  Weight: 78.6 kg

DRUGS (3)
  1. GLEEVEC [Suspect]
     Indication: GASTROINTESTINAL STROMAL TUMOUR
     Dosage: 300 MG, UNK,UNK
     Route: 065
  2. PROTONIX [Concomitant]
  3. ALBUTEROL [Concomitant]

REACTIONS (1)
  - HYPERKALAEMIA [None]
